FAERS Safety Report 9487144 (Version 1)
Quarter: 2013Q3

REPORT INFORMATION
  Report Type: Spontaneous
  Country: IT (occurrence: IT)
  Receive Date: 20130829
  Receipt Date: 20130829
  Transmission Date: 20140515
  Serious: Yes (Hospitalization)
  Sender: FDA-Public Use
  Company Number: IT-TEVA-428401ISR

PATIENT
  Age: 62 Year
  Sex: Female
  Weight: 70 kg

DRUGS (4)
  1. CARBOLITHIUM 300 MG [Suspect]
     Indication: BIPOLAR I DISORDER
     Dosage: 600 MILLIGRAM DAILY;
     Route: 048
     Dates: start: 20130101, end: 20130415
  2. SEROQUEL [Concomitant]
     Indication: BIPOLAR I DISORDER
     Dosage: 500 MILLIGRAM DAILY;
     Route: 048
  3. RIVOTRIL 2,5 MG/ML [Concomitant]
     Indication: BIPOLAR I DISORDER
     Dosage: 5 GTT DAILY; SOLUTION FOR ORAL DROPS
     Route: 048
  4. HALDOL DECANOAS 50 MG/ML [Concomitant]
     Indication: BIPOLAR I DISORDER
     Dosage: .5 DOSAGE FORMS DAILY;
     Route: 030

REACTIONS (4)
  - Malaise [Recovering/Resolving]
  - Toxicity to various agents [Recovering/Resolving]
  - Disorientation [Recovering/Resolving]
  - Hallucination [Recovering/Resolving]
